FAERS Safety Report 7350029-9 (Version None)
Quarter: 2011Q1

REPORT INFORMATION
  Report Type: 
  Country: None (occurrence: None)
  Receive Date: 20110302
  Receipt Date: 20110215
  Transmission Date: 20110831
  Serious: Yes (Hospitalization)
  Sender: FDA-Public Use
  Company Number: DSU-2011-01189

PATIENT
  Age: 64 Year
  Sex: Male
  Weight: 95.24 kg

DRUGS (3)
  1. LIPITOR [Suspect]
     Indication: LOW DENSITY LIPOPROTEIN ABNORMAL
     Dosage: 5 MG (5 MG, QD), PER ORAL; 20 MG (20 MG, QD), PER ORAL; 40 MG (40 MG, QD), PER ORAL
     Route: 048
  2. LIPITOR [Suspect]
     Indication: BLOOD TRIGLYCERIDES ABNORMAL
     Dosage: 5 MG (5 MG, QD), PER ORAL; 20 MG (20 MG, QD), PER ORAL; 40 MG (40 MG, QD), PER ORAL
     Route: 048
  3. BENICAR [Suspect]
     Indication: BLOOD PRESSURE ABNORMAL
     Dosage: PER ORAL, 20MG (QD), PER ORAL, PER ORAL
     Route: 048

REACTIONS (2)
  - BLOOD PRESSURE ABNORMAL [None]
  - CORONARY ARTERY OCCLUSION [None]
